FAERS Safety Report 10791793 (Version 1)
Quarter: 2015Q1

REPORT INFORMATION
  Report Type: Report from Study
  Country: US (occurrence: US)
  Receive Date: 20150213
  Receipt Date: 20150213
  Transmission Date: 20150721
  Serious: Yes (Death, Other)
  Sender: FDA-Public Use
  Company Number: US-ROCHE-1535193

PATIENT

DRUGS (5)
  1. BENDAMUSTINE [Suspect]
     Active Substance: BENDAMUSTINE
     Indication: CHRONIC LYMPHOCYTIC LEUKAEMIA
     Dosage: ON DAY 1 AND 2 OF THE FIRST SIX 28 DAYS CYCLES
     Route: 042
  2. RITUXIMAB [Suspect]
     Active Substance: RITUXIMAB
     Indication: CHRONIC LYMPHOCYTIC LEUKAEMIA
     Route: 042
  3. DUVELISIB [Suspect]
     Active Substance: DUVELISIB
     Dosage: UP TO 12 CYCLES
     Route: 048
  4. DUVELISIB [Suspect]
     Active Substance: DUVELISIB
     Indication: CHRONIC LYMPHOCYTIC LEUKAEMIA
     Dosage: UP TO 12 CYCLES
     Route: 048
  5. DUVELISIB [Suspect]
     Active Substance: DUVELISIB
     Dosage: UP TO 12 CYCLES
     Route: 048

REACTIONS (5)
  - Alanine aminotransferase increased [Unknown]
  - Rash [Unknown]
  - Neutropenia [Unknown]
  - Pneumonia [Fatal]
  - Aspartate aminotransferase increased [Unknown]
